FAERS Safety Report 18043516 (Version 1)
Quarter: 2020Q3

REPORT INFORMATION
  Report Type: Spontaneous
  Country: US (occurrence: US)
  Receive Date: 20200717
  Receipt Date: 20200717
  Transmission Date: 20201103
  Serious: No
  Sender: FDA-Public Use
  Company Number: None

PATIENT
  Age: 36 Year
  Sex: Male

DRUGS (4)
  1. PALYNZIQ [Suspect]
     Active Substance: PEGVALIASE-PQPZ
     Indication: PHENYLKETONURIA
     Route: 058
     Dates: start: 20200320
  2. PALYNZIQ 10 MG [Concomitant]
     Dates: start: 20200424, end: 20200521
  3. PALYNZIQ [Concomitant]
     Active Substance: PEGVALIASE-PQPZ
     Dates: start: 20200522
  4. PALYNZIQ 2.5 MG [Concomitant]
     Dates: start: 20200320, end: 20200422

REACTIONS (1)
  - Drug level decreased [None]

NARRATIVE: CASE EVENT DATE: 20200717
